FAERS Safety Report 7341207-3 (Version None)
Quarter: 2011Q1

REPORT INFORMATION
  Report Type: 
  Country: None (occurrence: None)
  Receive Date: 20110309
  Receipt Date: 20110228
  Transmission Date: 20110831
  Serious: No
  Sender: FDA-Public Use
  Company Number: GB-GILEAD-2010-0033980

PATIENT
  Age: 41 Year
  Sex: Female

DRUGS (3)
  1. REYATAZ [Concomitant]
     Route: 048
  2. TRUVADA [Suspect]
     Indication: HIV INFECTION
     Route: 048
  3. NORVIR [Concomitant]
     Route: 048

REACTIONS (2)
  - PRENATAL SCREENING TEST ABNORMAL [None]
  - PREGNANCY [None]
